FAERS Safety Report 19982763 (Version 1)
Quarter: 2021Q4

REPORT INFORMATION
  Report Type: Spontaneous
  Country: AU (occurrence: AU)
  Receive Date: 20211021
  Receipt Date: 20211021
  Transmission Date: 20220303
  Serious: Yes (Death)
  Sender: FDA-Public Use
  Company Number: AU-OTSUKA-2021_032535

PATIENT
  Age: 66 Year
  Sex: Female

DRUGS (2)
  1. SAMSCA [Suspect]
     Active Substance: TOLVAPTAN
     Indication: Hyponatraemia
     Dosage: 15 MG, QD
     Route: 065
     Dates: start: 20210915
  2. SAMSCA [Suspect]
     Active Substance: TOLVAPTAN
     Dosage: 30 MG, QD
     Route: 065
     Dates: start: 20210916, end: 20210920

REACTIONS (3)
  - Death [Fatal]
  - Blood sodium abnormal [Recovering/Resolving]
  - Drug titration error [Unknown]

NARRATIVE: CASE EVENT DATE: 20210930
